FAERS Safety Report 10503815 (Version 2)
Quarter: 2014Q4

REPORT INFORMATION
  Report Type: Spontaneous
  Country: US (occurrence: US)
  Receive Date: 20141008
  Receipt Date: 20141027
  Transmission Date: 20150528
  Serious: No
  Sender: FDA-Public Use
  Company Number: US-PFIZER INC-2014271554

PATIENT
  Age: 76 Year
  Sex: Female
  Weight: 79 kg

DRUGS (3)
  1. LYRICA [Suspect]
     Active Substance: PREGABALIN
     Indication: BURNING SENSATION
     Dosage: 75 MG, 2X/DAY
     Dates: start: 201409
  2. CELEBREX [Suspect]
     Active Substance: CELECOXIB
     Indication: PERIPHERAL SWELLING
     Dosage: 200 MG, 1X/DAY
     Dates: start: 1988, end: 201409
  3. CELEBREX [Suspect]
     Active Substance: CELECOXIB
     Indication: ARTHRALGIA

REACTIONS (6)
  - Pain in extremity [Unknown]
  - Weight bearing difficulty [Unknown]
  - Peripheral swelling [Unknown]
  - Joint range of motion decreased [Unknown]
  - Gait disturbance [Unknown]
  - Arthralgia [Unknown]
